FAERS Safety Report 5885738-1 (Version None)
Quarter: 2008Q3

REPORT INFORMATION
  Report Type: 
  Country: None (occurrence: None)
  Receive Date: 20080916
  Receipt Date: 20080903
  Transmission Date: 20090109
  Serious: Yes (Hospitalization)
  Sender: FDA-Public Use
  Company Number: JP-ELI_LILLY_AND_COMPANY-JP200809001696

PATIENT
  Age: 52 Year
  Sex: Female
  Weight: 37 kg

DRUGS (4)
  1. HUMALOG [Suspect]
     Indication: TYPE 1 DIABETES MELLITUS
     Dosage: 2 IU, EACH MORNING
     Route: 058
     Dates: start: 20050101
  2. HUMALOG [Suspect]
     Dosage: 2 IU, DAILY (1/D)
     Route: 058
     Dates: start: 20050101
  3. HUMALOG [Suspect]
     Dosage: 2 IU, EACH EVENING
     Route: 058
     Dates: start: 20050101
  4. LANTUS [Concomitant]
     Indication: TYPE 1 DIABETES MELLITUS
     Dosage: 2 IU, EACH MORNING
     Route: 058

REACTIONS (1)
  - HYPOGLYCAEMIC COMA [None]
